FAERS Safety Report 7830483-6 (Version None)
Quarter: 2011Q4

REPORT INFORMATION
  Report Type: 
  Country: None (occurrence: None)
  Receive Date: 20111021
  Receipt Date: 20111013
  Transmission Date: 20120403
  Serious: Yes (Death, Hospitalization, Other)
  Sender: FDA-Public Use
  Company Number: KR-JNJFOC-20100908574

PATIENT
  Age: 39 Year
  Sex: Male
  Weight: 50 kg

DRUGS (6)
  1. LOPERAMIDE HCL [Concomitant]
     Indication: DIARRHOEA
     Dosage: DOSE: 2 T
     Route: 048
     Dates: start: 20100420, end: 20100726
  2. PENTASA S.R. [Concomitant]
     Indication: CROHN'S DISEASE
     Route: 048
     Dates: start: 20060615, end: 20100726
  3. REMICADE [Suspect]
     Route: 042
     Dates: start: 20100420
  4. CITOPCIN [Concomitant]
     Indication: CROHN'S DISEASE
     Route: 048
     Dates: start: 20100406, end: 20100420
  5. AZATHIOPRINE [Concomitant]
     Indication: CROHN'S DISEASE
     Route: 048
     Dates: start: 20090616, end: 20100726
  6. REMICADE [Suspect]
     Indication: CROHN'S DISEASE
     Route: 042
     Dates: start: 20100406

REACTIONS (7)
  - PNEUMONIA [None]
  - NEUTROPENIC SEPSIS [None]
  - DISSEMINATED INTRAVASCULAR COAGULATION [None]
  - INTRA-ABDOMINAL HAEMORRHAGE [None]
  - PANCYTOPENIA [None]
  - HAEMATOMA [None]
  - TUBERCULOSIS GASTROINTESTINAL [None]
